FAERS Safety Report 9629902 (Version 2)
Quarter: 2013Q4

REPORT INFORMATION
  Report Type: Report from Study
  Country: JP (occurrence: JP)
  Receive Date: 20131017
  Receipt Date: 20131118
  Transmission Date: 20140711
  Serious: Yes (Death)
  Sender: FDA-Public Use
  Company Number: JP-UCBSA-100311

PATIENT
  Age: 66 Year
  Sex: Male
  Weight: 63 kg

DRUGS (5)
  1. E KEPPRA [Suspect]
     Indication: PARTIAL SEIZURES WITH SECONDARY GENERALISATION
     Route: 048
     Dates: start: 20120928, end: 201304
  2. SODIUM CHLORIDE [Concomitant]
     Dosage: DAILY DOSE: 3 MG
     Dates: start: 20120919, end: 201304
  3. DEPAKENE [Concomitant]
     Dosage: DAILY DOSE: 800 MG
     Route: 048
     Dates: start: 20080523
  4. GASTER D [Concomitant]
     Dosage: DAILY DOSE: 40 MG
     Route: 048
     Dates: end: 201304
  5. ASPIRIN [Concomitant]
     Dosage: DAILY DOSE: 100 MG
     Route: 048
     Dates: end: 201304

REACTIONS (1)
  - Brain neoplasm [Fatal]
